FAERS Safety Report 4282915-0 (Version None)
Quarter: 2004Q1

REPORT INFORMATION
  Report Type: 
  Country: None (occurrence: None)
  Receive Date: 20040130
  Receipt Date: 20031113
  Transmission Date: 20041129
  Serious: No
  Sender: FDA-Public Use
  Company Number: US-BRISTOL-MYERS SQUIBB COMPANY-12435269

PATIENT
  Age: 51 Year
  Sex: Female

DRUGS (4)
  1. SERZONE [Suspect]
     Indication: DEPRESSION
     Route: 048
     Dates: start: 20031111
  2. TOPAMAX [Concomitant]
  3. ALPRAZOLAM [Concomitant]
  4. IMITREX [Concomitant]

REACTIONS (4)
  - DIZZINESS [None]
  - MIGRAINE [None]
  - NAUSEA [None]
  - SOMNOLENCE [None]
